FAERS Safety Report 8363299-5 (Version None)
Quarter: 2012Q2

REPORT INFORMATION
  Report Type: 
  Country: None (occurrence: None)
  Receive Date: 20120514
  Receipt Date: 20091026
  Transmission Date: 20120825
  Serious: Yes (Hospitalization, Disabling)
  Sender: FDA-Public Use
  Company Number: 420943

PATIENT
  Age: 75 Year
  Sex: Male

DRUGS (5)
  1. TOLTERODINE TARTRATE [Concomitant]
  2. GENTAMICIN [Suspect]
     Indication: PRODUCT USED FOR UNKNOWN INDICATION
  3. ARCOXIA [Suspect]
     Indication: OSTEOARTHRITIS
     Dosage: 60 MG
     Dates: end: 20040101
  4. (CO-TENIDONE) [Concomitant]
  5. IRBESARTAN [Concomitant]

REACTIONS (2)
  - ANAPHYLACTIC REACTION [None]
  - CEREBROVASCULAR ACCIDENT [None]
